FAERS Safety Report 7249123-2 (Version None)
Quarter: 2011Q1

REPORT INFORMATION
  Report Type: 
  Country: None (occurrence: None)
  Receive Date: 20110128
  Receipt Date: 20101111
  Transmission Date: 20110831
  Serious: Yes (Death, Disabling)
  Sender: FDA-Public Use
  Company Number: US-BAYER-201035270NA

PATIENT
  Sex: Male
  Weight: 61.5 kg

DRUGS (29)
  1. MAGNEVIST [Suspect]
     Indication: IMAGING PROCEDURE
     Dosage: 20 ML TWICE
     Dates: start: 20040510, end: 20040510
  2. ROCALTROL [Concomitant]
  3. NORVASC [Concomitant]
  4. DIOVAN [Concomitant]
  5. TOPROL-XL [Concomitant]
  6. CLONIDINE [Concomitant]
  7. ASPIRIN [Concomitant]
  8. EPOGEN [Concomitant]
  9. DEXSOL [Concomitant]
  10. FLUTICASONE PROPIONATE [Concomitant]
  11. OMNISCAN [Suspect]
     Indication: ANGIOGRAM
  12. DIATX [Concomitant]
  13. LISINOPRIL [Concomitant]
  14. PREDNISONE [Concomitant]
     Dosage: UNK
     Dates: start: 20040101
  15. MAGNEVIST [Suspect]
     Indication: ANGIOGRAM
  16. OMNISCAN [Suspect]
     Indication: IMAGING PROCEDURE
     Dosage: 40 ML, ONCE
     Dates: start: 20040330, end: 20040330
  17. ACEON [Concomitant]
  18. DOXAZOSIN [Concomitant]
  19. LASIX [Concomitant]
  20. TRIAMCINOLONE [Concomitant]
  21. VENOFER [Concomitant]
  22. TUMS [CALCIUM CARBONATE] [Concomitant]
  23. ZEMPLAR [Concomitant]
  24. SODIUM BICARBONATE [Concomitant]
  25. TIAZAC [Concomitant]
  26. PREDNISONE [Concomitant]
     Dosage: UNK
     Dates: start: 20020101
  27. DILTIAZEM CD [Concomitant]
  28. PREDNISONE [Concomitant]
     Dosage: UNK
     Dates: start: 20060101
  29. TAZTIA [Concomitant]

REACTIONS (18)
  - FIBROSIS [None]
  - DEFORMITY [None]
  - SKIN TIGHTNESS [None]
  - MUSCLE FATIGUE [None]
  - SCAR [None]
  - SKIN HYPERTROPHY [None]
  - OEDEMA PERIPHERAL [None]
  - JOINT STIFFNESS [None]
  - PAIN [None]
  - MOBILITY DECREASED [None]
  - RASH GENERALISED [None]
  - PRURITUS GENERALISED [None]
  - GENERAL PHYSICAL HEALTH DETERIORATION [None]
  - SKIN INDURATION [None]
  - SKIN EXFOLIATION [None]
  - NEPHROGENIC SYSTEMIC FIBROSIS [None]
  - SKIN PLAQUE [None]
  - JOINT CONTRACTURE [None]
